FAERS Safety Report 14501847 (Version 1)
Quarter: 2018Q1

REPORT INFORMATION
  Report Type: Spontaneous
  Country: FR (occurrence: FR)
  Receive Date: 20180207
  Receipt Date: 20180207
  Transmission Date: 20180509
  Serious: Yes (Other)
  Sender: FDA-Public Use
  Company Number: FR-MERCK KGAA-2041610

PATIENT
  Age: 51 Year
  Sex: Female
  Weight: 65 kg

DRUGS (1)
  1. NOVOTHYROX [Suspect]
     Active Substance: LEVOTHYROXINE SODIUM
     Indication: THYROIDECTOMY
     Route: 048
     Dates: start: 20170701, end: 20171019

REACTIONS (4)
  - Dizziness [Not Recovered/Not Resolved]
  - Thyroxine free increased [Not Recovered/Not Resolved]
  - Fatigue [Not Recovered/Not Resolved]
  - Blood thyroid stimulating hormone normal [Recovered/Resolved]

NARRATIVE: CASE EVENT DATE: 201707
